FAERS Safety Report 16077413 (Version 1)
Quarter: 2019Q1

REPORT INFORMATION
  Report Type: Spontaneous
  Country: US (occurrence: US)
  Receive Date: 20190315
  Receipt Date: 20190315
  Transmission Date: 20190418
  Serious: Yes (Hospitalization, Other)
  Sender: FDA-Public Use
  Company Number: US-DRREDDYS-USA/USA/19/0108606

PATIENT
  Age: 73 Year
  Sex: Female

DRUGS (9)
  1. BORTEZOMIB. [Suspect]
     Active Substance: BORTEZOMIB
     Dosage: FOUR CYCLES OF BORTEZOMIB
  2. MELPHALAN HYDROCHLORIDE FOR INJECTION [Suspect]
     Active Substance: MELPHALAN HYDROCHLORIDE
     Indication: STEM CELL TRANSPLANT
     Route: 065
  3. BORTEZOMIB. [Suspect]
     Active Substance: BORTEZOMIB
     Indication: PLASMA CELL MYELOMA
     Dosage: TWO CYCLES OF BORTEZOMIB
  4. LENALIDOMIDE [Suspect]
     Active Substance: LENALIDOMIDE
     Indication: PLASMA CELL MYELOMA
     Dosage: FOUR CYCLES OF LENALIDOMIDE
  5. BORTEZOMIB. [Suspect]
     Active Substance: BORTEZOMIB
     Dosage: MAINTENANCE WITH LOW DOSE BORTEZOMIB EVERY TWO WEEKS.
  6. DEXAMETHASONE. [Suspect]
     Active Substance: DEXAMETHASONE
     Indication: PLASMA CELL MYELOMA
     Dosage: TWO CYCLES OF DEXAMETHASONE
  7. DEXAMETHASONE. [Suspect]
     Active Substance: DEXAMETHASONE
     Dosage: FOUR CYCLES OF DEXAMETHASONE
  8. LENALIDOMIDE [Suspect]
     Active Substance: LENALIDOMIDE
     Dosage: MAINTENANCE WITH LOW DOSE LENALIDOMIDE
  9. CYCLOPHOSPHAMIDE. [Suspect]
     Active Substance: CYCLOPHOSPHAMIDE
     Indication: PLASMA CELL MYELOMA
     Dosage: TWO CYCLES OF CYCLOPHOSPHAMIDE

REACTIONS (3)
  - Thrombotic microangiopathy [Unknown]
  - Renal failure [Recovering/Resolving]
  - Renal arteriosclerosis [Unknown]
